FAERS Safety Report 6719368-6 (Version None)
Quarter: 2010Q2

REPORT INFORMATION
  Report Type: 
  Country: None (occurrence: None)
  Receive Date: 20100511
  Receipt Date: 20100427
  Transmission Date: 20101027
  Serious: Yes (Hospitalization)
  Sender: FDA-Public Use
  Company Number: KR-CELGENEUS-090-21880-10042206

PATIENT
  Sex: Female
  Weight: 52 kg

DRUGS (6)
  1. REVLIMID [Suspect]
     Indication: MULTIPLE MYELOMA
     Route: 048
     Dates: start: 20100416
  2. REVLIMID [Suspect]
     Route: 048
     Dates: start: 20100302, end: 20100323
  3. REVLIMID [Suspect]
     Route: 048
     Dates: start: 20100323, end: 20100413
  4. REVLIMID [Suspect]
     Route: 048
     Dates: start: 20100125, end: 20100215
  5. REVLIMID [Suspect]
     Route: 048
     Dates: start: 20090101
  6. DEXAMETHASONE [Concomitant]
     Indication: MULTIPLE MYELOMA
     Route: 065

REACTIONS (1)
  - NEUTROPHIL COUNT INCREASED [None]
